FAERS Safety Report 8280808-5 (Version None)
Quarter: 2012Q2

REPORT INFORMATION
  Report Type: 
  Country: None (occurrence: None)
  Receive Date: 20120412
  Receipt Date: 20120403
  Transmission Date: 20120825
  Serious: Yes (Other)
  Sender: FDA-Public Use
  Company Number: CA-ABBOTT-12P-028-0921735-00

PATIENT
  Sex: Female
  Weight: 90.8 kg

DRUGS (11)
  1. HUMIRA [Suspect]
     Indication: RHEUMATOID ARTHRITIS
     Route: 058
     Dates: start: 20100316, end: 20111207
  2. PREMARIN [Concomitant]
     Indication: MENOPAUSE
     Route: 061
  3. TRAMADOL HCL [Concomitant]
     Indication: ANALGESIC THERAPY
     Route: 048
  4. ELAVIL [Concomitant]
     Indication: ARTHRALGIA
     Route: 048
  5. AMILORIDE HYDROCHLORIDE [Concomitant]
     Indication: DIURETIC THERAPY
     Route: 048
  6. IBUPROFEN [Concomitant]
     Indication: PAIN
     Route: 048
  7. NEXIUM [Concomitant]
     Indication: GASTROOESOPHAGEAL REFLUX DISEASE
     Route: 048
  8. RAMIPRIL [Concomitant]
     Indication: BLOOD PRESSURE
     Route: 048
  9. SYNTHROID [Concomitant]
     Indication: HYPOTHYROIDISM
     Route: 048
  10. TYLENOL (CAPLET) [Concomitant]
     Indication: PAIN
     Route: 048
  11. HUMIRA [Suspect]
     Dates: start: 20120307

REACTIONS (7)
  - DRUG INEFFECTIVE [None]
  - ARTHRITIS [None]
  - DEVICE DISLOCATION [None]
  - MUSCULOSKELETAL PAIN [None]
  - ACTIVITIES OF DAILY LIVING IMPAIRED [None]
  - ARTHRALGIA [None]
  - PAIN IN EXTREMITY [None]
